FAERS Safety Report 7635118-3 (Version None)
Quarter: 2011Q3

REPORT INFORMATION
  Report Type: 
  Country: None (occurrence: None)
  Receive Date: 20110718
  Receipt Date: 20110708
  Transmission Date: 20111222
  Serious: Yes (Hospitalization)
  Sender: FDA-Public Use
  Company Number: WAES 1106USA01085

PATIENT
  Age: 38 Year
  Sex: Male
  Weight: 75.7507 kg

DRUGS (7)
  1. CRIZOTINIB [Suspect]
     Indication: NON-SMALL CELL LUNG CANCER
     Dosage: 250 MG/BID/PO
     Route: 048
     Dates: start: 20090714, end: 20110411
  2. LOVENOX [Concomitant]
  3. DECADRON [Suspect]
     Dosage: /PO
     Route: 048
     Dates: start: 20101020
  4. DECADRON [Suspect]
     Dosage: /PO
     Route: 048
     Dates: start: 20110322, end: 20110410
  5. HEPARIN [Concomitant]
  6. KEPPRA [Concomitant]
  7. RITALIN [Concomitant]

REACTIONS (9)
  - ANXIETY [None]
  - THROMBOCYTOPENIA [None]
  - PNEUMOCYSTIS JIROVECI PNEUMONIA [None]
  - METASTASES TO CENTRAL NERVOUS SYSTEM [None]
  - CEREBRAL HAEMORRHAGE [None]
  - STREPTOCOCCUS TEST POSITIVE [None]
  - RESPIRATORY FAILURE [None]
  - AGITATION [None]
  - VIITH NERVE PARALYSIS [None]
